FAERS Safety Report 10670920 (Version 1)
Quarter: 2014Q4

REPORT INFORMATION
  Report Type: Spontaneous
  Country: CO (occurrence: None)
  Receive Date: 20141219
  Receipt Date: 20141219
  Transmission Date: 20150529
  Serious: Yes (Hospitalization)
  Sender: FDA-Public Use
  Company Number: 2014-20943

PATIENT
  Age: 67 Year
  Sex: Female

DRUGS (2)
  1. INSULIN (INSULIN) [Concomitant]
     Active Substance: INSULIN NOS
  2. EYLEA [Suspect]
     Active Substance: AFLIBERCEPT
     Indication: DIABETIC RETINAL OEDEMA
     Route: 031
     Dates: start: 20141112

REACTIONS (1)
  - Anaemia [None]

NARRATIVE: CASE EVENT DATE: 20141118
